FAERS Safety Report 7313141-6 (Version None)
Quarter: 2011Q1

REPORT INFORMATION
  Report Type: 
  Country: None (occurrence: None)
  Receive Date: 20110217
  Receipt Date: 20110217
  Transmission Date: 20110831
  Serious: Yes (Hospitalization)
  Sender: FDA-Public Use
  Company Number: None

PATIENT
  Age: 71 Year
  Sex: Male
  Weight: 84 kg

DRUGS (2)
  1. PROLASTIN-C [Suspect]
     Indication: ALPHA-1 ANTI-TRYPSIN DEFICIENCY
     Dosage: 10,530MG Q 2 WEEKS IV DRIP
     Route: 041
     Dates: start: 20100317, end: 20110214
  2. PROLASTIN-C [Suspect]
     Indication: ALPHA-1 ANTI-TRYPSIN DEFICIENCY
     Dosage: 10,530MG Q 2 WEEKS IV DRIP
     Route: 041
     Dates: start: 20110214, end: 20110214

REACTIONS (5)
  - VOMITING [None]
  - RASH [None]
  - DYSPNOEA [None]
  - LIP SWELLING [None]
  - NAUSEA [None]
